FAERS Safety Report 24776508 (Version 1)
Quarter: 2024Q4

REPORT INFORMATION
  Report Type: Other
  Country: ES (occurrence: ES)
  Receive Date: 20241226
  Receipt Date: 20241226
  Transmission Date: 20250114
  Serious: Yes (Hospitalization, Other)
  Sender: ASPEN
  Company Number: None

PATIENT

DRUGS (2)
  1. DESOGESTREL [Suspect]
     Active Substance: DESOGESTREL
     Indication: Assisted fertilisation
     Dosage: 1 DOSAGE FORM (1-0-0 X 21 D)
     Route: 048
     Dates: start: 20230726, end: 20240315
  2. ESTRADIOL [Suspect]
     Active Substance: ESTRADIOL
     Indication: Assisted fertilisation
     Dosage: 2 MILLIGRAM, 1 DOSE 8 HOURS
     Route: 048
     Dates: start: 20231017, end: 20240216

REACTIONS (4)
  - Off label use [Unknown]
  - Hepatic cytolysis [Recovered/Resolved]
  - Hypocoagulable state [Recovered/Resolved]
  - Hyperbilirubinaemia [Recovered/Resolved]

NARRATIVE: CASE EVENT DATE: 20230726
